FAERS Safety Report 7166447-8 (Version None)
Quarter: 2010Q4

REPORT INFORMATION
  Report Type: 
  Country: None (occurrence: None)
  Receive Date: 20101216
  Receipt Date: 20101203
  Transmission Date: 20110411
  Serious: Yes (Other)
  Sender: FDA-Public Use
  Company Number: PHEH2010US01852

PATIENT
  Sex: Female

DRUGS (9)
  1. VIVELLE [Suspect]
     Indication: MENOPAUSE
  2. VIVELLE [Suspect]
     Indication: CHILLS
  3. VIVELLE-DOT [Suspect]
     Indication: MENOPAUSE
     Dosage: 0.05 MG
     Route: 062
  4. VIVELLE-DOT [Suspect]
     Indication: CHILLS
     Dosage: 0.1 MG AND 0.075 MG
     Route: 062
  5. VIVELLE-DOT [Suspect]
     Dosage: 0.1 MG AND 0.5 MG
     Route: 062
  6. VIVELLE-DOT [Suspect]
     Dosage: 0.1 MG
     Route: 062
  7. ESTRADERM [Suspect]
  8. PRIMERA [Suspect]
  9. HOMEOPATHIC PREPARATIONS [Concomitant]

REACTIONS (16)
  - ANGER [None]
  - ANXIETY [None]
  - BLOOD OESTROGEN DECREASED [None]
  - BRUXISM [None]
  - CHILLS [None]
  - DRUG INEFFECTIVE [None]
  - EXPIRED DRUG ADMINISTERED [None]
  - FATIGUE [None]
  - FEELING HOT [None]
  - HEPATIC NEOPLASM [None]
  - HOT FLUSH [None]
  - HUNGER [None]
  - NASOPHARYNGITIS [None]
  - SKIN EXFOLIATION [None]
  - SOMNOLENCE [None]
  - TREMOR [None]
